FAERS Safety Report 26209287 (Version 1)
Quarter: 2025Q4

REPORT INFORMATION
  Report Type: Spontaneous
  Country: JP (occurrence: JP)
  Receive Date: 20251229
  Receipt Date: 20251229
  Transmission Date: 20260117
  Serious: Yes (Hospitalization, Disabling)
  Sender: MERCK SHARP & DOHME LLC
  Company Number: JP-009507513-2322717

PATIENT
  Age: 60 Year
  Sex: Female
  Weight: 55.5 kg

DRUGS (5)
  1. KEYTRUDA [Suspect]
     Active Substance: PEMBROLIZUMAB
     Indication: Triple negative breast cancer
     Route: 041
     Dates: start: 20250522, end: 20250612
  2. PACLITAXEL [Concomitant]
     Active Substance: PACLITAXEL
     Indication: Triple negative breast cancer
     Route: 065
     Dates: start: 20250717
  3. PACLITAXEL [Concomitant]
     Active Substance: PACLITAXEL
     Indication: Triple negative breast cancer
     Route: 065
     Dates: start: 20250522, end: 20250612
  4. CARBOPLATIN [Concomitant]
     Active Substance: CARBOPLATIN
     Indication: Triple negative breast cancer
     Route: 065
     Dates: start: 20250717
  5. CARBOPLATIN [Concomitant]
     Active Substance: CARBOPLATIN
     Indication: Triple negative breast cancer
     Route: 065
     Dates: start: 20250522, end: 20250612

REACTIONS (1)
  - Dyskinesia [Recovered/Resolved with Sequelae]

NARRATIVE: CASE EVENT DATE: 20250619
